FAERS Safety Report 6076651-8 (Version None)
Quarter: 2009Q1

REPORT INFORMATION
  Report Type: 
  Country: None (occurrence: None)
  Receive Date: 20090213
  Receipt Date: 20090209
  Transmission Date: 20090719
  Serious: Yes (Death, Hospitalization)
  Sender: FDA-Public Use
  Company Number: CA-CELGENEUS-028-C5013-08101307

PATIENT
  Sex: Male
  Weight: 68.9 kg

DRUGS (32)
  1. CC-5013 [Suspect]
     Indication: MULTIPLE MYELOMA
     Route: 048
     Dates: start: 20060127, end: 20081005
  2. CC-5013 [Suspect]
     Route: 048
     Dates: start: 20081016, end: 20081028
  3. DEXAMETHASONE [Suspect]
     Indication: MULTIPLE MYELOMA
     Route: 048
     Dates: start: 20060127
  4. PROCHLORPERAZINE [Suspect]
     Route: 048
     Dates: start: 20081108, end: 20081112
  5. METACLOPRAMIDE [Concomitant]
     Indication: NAUSEA
     Route: 048
     Dates: start: 20081007, end: 20081025
  6. COTRIMAXAZOLE [Concomitant]
     Route: 048
     Dates: start: 20081009, end: 20081016
  7. LEVOFLOXACIN [Concomitant]
     Route: 048
     Dates: start: 20081009, end: 20081027
  8. FILGRASTIM [Concomitant]
     Indication: NEUTROPENIA
     Route: 058
     Dates: start: 20081006, end: 20081112
  9. MOXIFLOXACIN HCL [Concomitant]
     Route: 047
     Dates: start: 20081006, end: 20081020
  10. CEFOTAXIME [Concomitant]
     Route: 051
     Dates: start: 20081005, end: 20081006
  11. CEFOTAXIME [Concomitant]
     Route: 051
     Dates: start: 20081027, end: 20081029
  12. CEFOTAXIME [Concomitant]
     Route: 051
     Dates: start: 20081007, end: 20081016
  13. BIMATOPROST [Concomitant]
     Route: 047
     Dates: start: 20081005, end: 20081108
  14. POLYSPORIN OINTMENT [Concomitant]
     Dosage: 10,000/500 UNITS
     Route: 047
     Dates: start: 20081005, end: 20081108
  15. SANDOZ [Concomitant]
     Route: 047
     Dates: start: 20081005, end: 20081005
  16. VIGAMOX [Concomitant]
     Route: 047
     Dates: start: 20081005, end: 20081005
  17. PREDNISOLONE [Concomitant]
     Route: 047
     Dates: start: 20081005, end: 20081108
  18. DEXTROMETHORPHAN [Concomitant]
     Indication: NEUTROPENIA
     Dosage: 10CC
     Route: 051
     Dates: start: 20081110, end: 20081112
  19. FENTANYL-75 [Concomitant]
     Indication: PAIN MANAGEMENT
     Dates: start: 20081009, end: 20081112
  20. OMEPRAZOLE [Concomitant]
     Route: 048
     Dates: start: 20081010, end: 20081108
  21. ZOFRAN [Concomitant]
     Dates: start: 20081017, end: 20081112
  22. GRAVOL TAB [Concomitant]
     Dates: start: 20081026, end: 20081112
  23. NEUPOGEN [Concomitant]
     Indication: NEUTROPENIA
     Route: 058
     Dates: start: 20081027, end: 20081027
  24. VANCOMYCIN HCL [Concomitant]
     Route: 051
     Dates: start: 20081029, end: 20081108
  25. CASPOFUNGIN [Concomitant]
     Indication: ANTIFUNGAL PROPHYLAXIS
     Route: 051
     Dates: start: 20081030, end: 20081030
  26. CASPOFUNGIN [Concomitant]
     Route: 051
     Dates: start: 20081031, end: 20081108
  27. IMIPENEM [Concomitant]
     Route: 051
     Dates: start: 20081030, end: 20081108
  28. STEMETIL [Concomitant]
     Route: 051
     Dates: start: 20081106, end: 20081107
  29. SEPTRA [Concomitant]
     Route: 048
     Dates: start: 20081107, end: 20081108
  30. CODEINE [Concomitant]
     Indication: COUGH
     Route: 048
     Dates: start: 20081107, end: 20081108
  31. CLINDAMYCIN [Concomitant]
     Route: 048
     Dates: start: 20081108, end: 20081108
  32. PRIMAQUINE [Concomitant]
     Route: 048
     Dates: start: 20081108, end: 20081108

REACTIONS (2)
  - PNEUMONIA [None]
  - RESPIRATORY FAILURE [None]
